FAERS Safety Report 13885433 (Version 2)
Quarter: 2017Q3

REPORT INFORMATION
  Report Type: Report from Study
  Country: FR (occurrence: FR)
  Receive Date: 20170821
  Receipt Date: 20170908
  Transmission Date: 20171127
  Serious: Yes (Hospitalization)
  Sender: FDA-Public Use
  Company Number: FR-PFIZER INC-2017346265

PATIENT
  Age: 78 Year
  Sex: Female
  Weight: 51 kg

DRUGS (7)
  1. OXALIPLATIN. [Suspect]
     Active Substance: OXALIPLATIN
     Dosage: UNK
  2. LEUCOVORIN /00566701/ [Concomitant]
     Active Substance: LEUCOVORIN
     Indication: OESOPHAGEAL ADENOCARCINOMA
     Dosage: UNK
     Route: 042
  3. FLUOROURACIL. [Suspect]
     Active Substance: FLUOROURACIL
     Indication: OESOPHAGEAL ADENOCARCINOMA
     Dosage: 3100 MG, ONCE EVERY TWO WEEKS
     Route: 042
     Dates: start: 20170425
  4. FLUOROURACIL. [Suspect]
     Active Substance: FLUOROURACIL
     Dosage: 3900 MG, UNK
     Dates: start: 20170704
  5. OXALIPLATIN. [Suspect]
     Active Substance: OXALIPLATIN
     Indication: OESOPHAGEAL ADENOCARCINOMA
     Dosage: 125 MG, UNK
     Route: 042
     Dates: start: 20170425
  6. OXALIPLATIN. [Suspect]
     Active Substance: OXALIPLATIN
     Dosage: UNK
  7. OXALIPLATIN. [Suspect]
     Active Substance: OXALIPLATIN
     Dosage: 127.5 MG, UNK
     Dates: start: 20170704

REACTIONS (1)
  - Mitral valve incompetence [Not Recovered/Not Resolved]

NARRATIVE: CASE EVENT DATE: 20170711
